FAERS Safety Report 20458363 (Version 2)
Quarter: 2022Q1

REPORT INFORMATION
  Report Type: Spontaneous
  Country: CA (occurrence: CA)
  Receive Date: 20220211
  Receipt Date: 20220315
  Transmission Date: 20220423
  Serious: Yes (Death, Hospitalization, Other)
  Sender: FDA-Public Use
  Company Number: CA-CELLTRION INC.-2021CA017015

PATIENT

DRUGS (1)
  1. INFLECTRA [Suspect]
     Active Substance: INFLIXIMAB-DYYB
     Indication: Crohn^s disease
     Dosage: 10 MG/KG
     Route: 042
     Dates: start: 20211119

REACTIONS (3)
  - Death [Fatal]
  - Pneumonia [Unknown]
  - Headache [Unknown]

NARRATIVE: CASE EVENT DATE: 20211122
